FAERS Safety Report 12338990 (Version 4)
Quarter: 2017Q4

REPORT INFORMATION
  Report Type: Spontaneous
  Country: US (occurrence: US)
  Receive Date: 20160505
  Receipt Date: 20171211
  Transmission Date: 20180320
  Serious: Yes (Other)
  Sender: FDA-Public Use
  Company Number: US-PFIZER INC-2016210106

PATIENT
  Age: 30 Year
  Sex: Female
  Weight: 80 kg

DRUGS (12)
  1. GENOTROPIN [Suspect]
     Active Substance: SOMATROPIN
     Dosage: UNK
  2. ESTRADIOL. [Concomitant]
     Active Substance: ESTRADIOL
     Dosage: 1 MG, DAILY
  3. PREDNISONE. [Concomitant]
     Active Substance: PREDNISONE
     Indication: BLOOD PROLACTIN ABNORMAL
     Dosage: 4 DF, 1X/DAY [EVERY MORNING]
     Dates: start: 201711
  4. PROGESTERONE. [Concomitant]
     Active Substance: PROGESTERONE
     Dosage: 100 MG, 1X/DAY
  5. DEXAMETHASONE. [Concomitant]
     Active Substance: DEXAMETHASONE
     Indication: THYROID DISORDER
     Dosage: 5 MG, UNK
  6. GENOTROPIN [Suspect]
     Active Substance: SOMATROPIN
     Indication: OSTEOPOROSIS PROPHYLAXIS
     Dosage: 0.3 MG, DAILY
     Dates: end: 2017
  7. LEVOXYL [Concomitant]
     Active Substance: LEVOTHYROXINE SODIUM
     Indication: THYROID DISORDER
     Dosage: 75 UG, UNK
  8. DEXAMETHASONE. [Concomitant]
     Active Substance: DEXAMETHASONE
     Indication: HORMONE REPLACEMENT THERAPY
  9. PREDNISONE. [Concomitant]
     Active Substance: PREDNISONE
     Indication: THYROID DISORDER
  10. CABERGOLINE. [Concomitant]
     Active Substance: CABERGOLINE
     Indication: BLOOD PROLACTIN ABNORMAL
     Dosage: 5 MG, UNK
  11. LEVOXYL [Concomitant]
     Active Substance: LEVOTHYROXINE SODIUM
     Indication: BLOOD PROLACTIN ABNORMAL
     Dosage: 75 MG, 1X/DAY [EVERY MORNING]
     Dates: start: 2008
  12. GENOTROPIN [Suspect]
     Active Substance: SOMATROPIN
     Indication: BLOOD GROWTH HORMONE DECREASED
     Dosage: 0.3 MG, 1X/DAY
     Dates: start: 20171201

REACTIONS (14)
  - Diarrhoea [Recovered/Resolved]
  - Device issue [Recovered/Resolved]
  - Wrong technique in product usage process [Unknown]
  - Incorrect dose administered [Recovered/Resolved]
  - Cushing^s syndrome [Unknown]
  - Dizziness [Recovered/Resolved]
  - Joint swelling [Not Recovered/Not Resolved]
  - Peripheral swelling [Not Recovered/Not Resolved]
  - Decreased appetite [Recovered/Resolved]
  - Drug dose omission [Not Recovered/Not Resolved]
  - Vomiting [Recovered/Resolved]
  - Swelling face [Recovering/Resolving]
  - Vertigo [Not Recovered/Not Resolved]
  - Weight increased [Recovering/Resolving]

NARRATIVE: CASE EVENT DATE: 201707
